FAERS Safety Report 6709811-0 (Version None)
Quarter: 2010Q2

REPORT INFORMATION
  Report Type: 
  Country: None (occurrence: None)
  Receive Date: 20100504
  Receipt Date: 20100430
  Transmission Date: 20101027
  Serious: Yes (Congenital Anomaly)
  Sender: FDA-Public Use
  Company Number: A0816652A

PATIENT
  Sex: Female
  Weight: 3.2 kg

DRUGS (3)
  1. EPZICOM [Suspect]
     Indication: HIV INFECTION
     Dates: start: 20090803, end: 20091228
  2. LEXIVA [Suspect]
     Indication: HIV INFECTION
     Dosage: 1400MG PER DAY
     Dates: start: 20090803, end: 20091228
  3. NORVIR [Suspect]
     Indication: HIV INFECTION
     Dosage: 200MG PER DAY
     Dates: start: 20090803, end: 20091228

REACTIONS (3)
  - DRUG EXPOSURE DURING PREGNANCY [None]
  - TALIPES [None]
  - ULTRASOUND SCAN ABNORMAL [None]
